FAERS Safety Report 21597416 (Version 1)
Quarter: 2022Q4

REPORT INFORMATION
  Report Type: Spontaneous
  Country: US (occurrence: None)
  Receive Date: 20221114
  Receipt Date: 20221114
  Transmission Date: 20230112
  Serious: No
  Sender: FDA-Public Use
  Company Number: None

PATIENT
  Age: 83 Year
  Sex: Female
  Weight: 65.25 kg

DRUGS (8)
  1. NITROFURANTOIN [Suspect]
     Active Substance: NITROFURANTOIN
     Indication: Urinary tract infection
     Dosage: OTHER QUANTITY : 14 TABLET(S);?FREQUENCY : TWICE A DAY;?
     Route: 048
     Dates: start: 20221104, end: 20221107
  2. SYNTHROID [Concomitant]
     Active Substance: LEVOTHYROXINE SODIUM
  3. LIPITOR [Concomitant]
     Active Substance: ATORVASTATIN CALCIUM
  4. LEXAPRO [Concomitant]
     Active Substance: ESCITALOPRAM OXALATE
  5. FLONASE [Concomitant]
     Active Substance: FLUTICASONE PROPIONATE
  6. ALBUTEROL [Concomitant]
  7. IBUPROFEN [Concomitant]
     Active Substance: IBUPROFEN
  8. EXTRA STRENGTH TYLENOL [Concomitant]

REACTIONS (4)
  - Myalgia [None]
  - Arthralgia [None]
  - Body temperature increased [None]
  - Arthritis [None]

NARRATIVE: CASE EVENT DATE: 20221106
